FAERS Safety Report 8410448-6 (Version None)
Quarter: 2012Q2

REPORT INFORMATION
  Report Type: 
  Country: None (occurrence: None)
  Receive Date: 20120323
  Receipt Date: 20111205
  Transmission Date: 20120825
  Serious: Yes (Hospitalization)
  Sender: FDA-Public Use
  Company Number: 163-21880-11120566

PATIENT
  Age: 50 Year
  Sex: Male
  Weight: 106.1417 kg

DRUGS (9)
  1. REVLIMID [Suspect]
     Indication: MULTIPLE MYELOMA
     Dosage: 10 MG, DAILY X21 DAYS, PO
     Route: 048
     Dates: start: 20110824
  2. AMBIEN [Concomitant]
  3. COLAZOL (BALSALAZIDE) [Concomitant]
  4. ZOMETA [Concomitant]
  5. DECADRON [Concomitant]
  6. COUMADIN [Concomitant]
  7. CALCIUM CARBONATE [Concomitant]
  8. GLUCOSAMINE (GLUCOSAMINE) [Concomitant]
  9. VITAMIN D [Concomitant]

REACTIONS (1)
  - PULMONARY THROMBOSIS [None]
